FAERS Safety Report 10800809 (Version 2)
Quarter: 2015Q1

REPORT INFORMATION
  Report Type: Spontaneous
  Country: None (occurrence: US)
  Receive Date: 20150216
  Receipt Date: 20150216
  Transmission Date: 20150721
  Serious: No
  Sender: FDA-Public Use
  Company Number: US-ALLERGAN-1425209US

PATIENT
  Sex: Female

DRUGS (2)
  1. RESTASIS [Suspect]
     Active Substance: CYCLOSPORINE
     Dosage: UNK, ONCE DAILY AND SOMETIMES SKIPPED A DAY
     Dates: start: 201409, end: 201410
  2. RESTASIS [Suspect]
     Active Substance: CYCLOSPORINE
     Indication: PRODUCT USED FOR UNKNOWN INDICATION
     Dosage: UNK, BID
     Dates: start: 201410, end: 201411

REACTIONS (6)
  - Depression [Not Recovered/Not Resolved]
  - Pharyngeal neoplasm benign [Recovered/Resolved]
  - Inappropriate schedule of drug administration [Unknown]
  - Incorrect product storage [Unknown]
  - Aphonia [Not Recovered/Not Resolved]
  - Drug dose omission [Unknown]
